FAERS Safety Report 5050720-3 (Version None)
Quarter: 2006Q3

REPORT INFORMATION
  Report Type: 
  Country: None (occurrence: None)
  Receive Date: 20060713
  Receipt Date: 20060703
  Transmission Date: 20061208
  Serious: Yes (Hospitalization)
  Sender: FDA-Public Use
  Company Number: FR-BRISTOL-MYERS SQUIBB COMPANY-13432208

PATIENT
  Age: 76 Year
  Sex: Male
  Weight: 96 kg

DRUGS (7)
  1. ELISOR TABS 20 MG [Suspect]
     Route: 048
     Dates: start: 20000801
  2. VERCYTE [Suspect]
     Indication: POLYCYTHAEMIA
     Route: 048
  3. ASPIRIN [Suspect]
     Route: 048
     Dates: start: 19961201
  4. OMIX [Suspect]
     Route: 048
  5. MONO-TILDIEM [Suspect]
     Route: 048
     Dates: start: 20020601
  6. UN-ALFA [Suspect]
     Route: 048
  7. NITRODERM [Concomitant]
     Dates: start: 19970101

REACTIONS (9)
  - CEREBROVASCULAR ACCIDENT [None]
  - DYSPEPSIA [None]
  - FEMORAL HERNIA [None]
  - GASTRIC ULCER [None]
  - GASTRITIS [None]
  - MONOPLEGIA [None]
  - PREPYLORIC STENOSIS [None]
  - PYLORIC STENOSIS [None]
  - WOUND EVISCERATION [None]
